FAERS Safety Report 7479415-3 (Version None)
Quarter: 2011Q2

REPORT INFORMATION
  Report Type: 
  Country: None (occurrence: None)
  Receive Date: 20110513
  Receipt Date: 20110509
  Transmission Date: 20111010
  Serious: Yes (Other)
  Sender: FDA-Public Use
  Company Number: FR-PFIZER INC-2011098941

PATIENT
  Sex: Female

DRUGS (1)
  1. TORISEL [Suspect]

REACTIONS (1)
  - INTESTINAL INFARCTION [None]
